FAERS Safety Report 11572186 (Version 1)
Quarter: 2015Q3

REPORT INFORMATION
  Report Type: Report from Study
  Country: KR (occurrence: KR)
  Receive Date: 20150929
  Receipt Date: 20150929
  Transmission Date: 20151125
  Serious: Yes (Hospitalization)
  Sender: FDA-Public Use
  Company Number: KR-BAYER-2015-427391

PATIENT
  Age: 74 Year
  Sex: Female

DRUGS (4)
  1. ASPIRIN. [Suspect]
     Active Substance: ASPIRIN
  2. RANITIDINE [Interacting]
     Active Substance: RANITIDINE\RANITIDINE HYDROCHLORIDE
  3. WARFARIN [Interacting]
     Active Substance: WARFARIN
  4. VALPROIC ACID. [Interacting]
     Active Substance: VALPROIC ACID

REACTIONS (5)
  - Coagulopathy [Recovering/Resolving]
  - Labelled drug-drug interaction medication error [None]
  - Toxicity to various agents [Recovering/Resolving]
  - Gingival bleeding [Recovering/Resolving]
  - Haematuria [Recovering/Resolving]
